FAERS Safety Report 21221688 (Version 2)
Quarter: 2022Q3

REPORT INFORMATION
  Report Type: Spontaneous
  Country: US (occurrence: US)
  Receive Date: 20220817
  Receipt Date: 20220821
  Transmission Date: 20221027
  Serious: No
  Sender: FDA-Public Use
  Company Number: US-SA-SAC20220812000598

PATIENT
  Age: 11 Year
  Sex: Male

DRUGS (1)
  1. DUPIXENT [Suspect]
     Active Substance: DUPILUMAB
     Indication: Dermatitis atopic
     Dosage: 200 MG FREQUENCY: OTHER
     Route: 058
     Dates: start: 202205, end: 202206

REACTIONS (8)
  - Injection site reaction [Unknown]
  - Injection site pain [Unknown]
  - Injection site erythema [Unknown]
  - Injection site swelling [Unknown]
  - Eczema [Unknown]
  - Rash macular [Unknown]
  - Drug ineffective [Unknown]
  - Device use issue [Unknown]

NARRATIVE: CASE EVENT DATE: 20220501
